FAERS Safety Report 23675418 (Version 1)
Quarter: 2024Q1

REPORT INFORMATION
  Report Type: Spontaneous
  Country: DE (occurrence: DE)
  Receive Date: 20240327
  Receipt Date: 20240327
  Transmission Date: 20240410
  Serious: Yes (Hospitalization, Other)
  Sender: FDA-Public Use
  Company Number: DE-002147023-NVSC2020DE041536

PATIENT
  Age: 39 Year
  Sex: Male

DRUGS (6)
  1. CLONAZEPAM [Suspect]
     Active Substance: CLONAZEPAM
     Indication: Myoclonus
     Dosage: UNK
     Route: 065
  2. PREGABALIN [Suspect]
     Active Substance: PREGABALIN
     Indication: Myelopathy
     Dosage: UNK
     Route: 065
  3. PREGABALIN [Suspect]
     Active Substance: PREGABALIN
     Indication: Pain
  4. BACLOFEN [Concomitant]
     Active Substance: BACLOFEN
     Indication: Myoclonus
     Dosage: UNK
     Route: 065
  5. BACLOFEN [Concomitant]
     Active Substance: BACLOFEN
     Indication: Myelopathy
  6. BACLOFEN [Concomitant]
     Active Substance: BACLOFEN
     Indication: Pain

REACTIONS (4)
  - Condition aggravated [Unknown]
  - Hypersensitivity [Unknown]
  - Drug ineffective for unapproved indication [Unknown]
  - Sedation [Unknown]
